FAERS Safety Report 5863846-9 (Version None)
Quarter: 2008Q3

REPORT INFORMATION
  Report Type: 
  Country: None (occurrence: None)
  Receive Date: 20080827
  Receipt Date: 20080814
  Transmission Date: 20090109
  Serious: Yes (Hospitalization)
  Sender: FDA-Public Use
  Company Number: JPI-P-004380

PATIENT
  Age: 64 Year
  Sex: Female

DRUGS (10)
  1. XYREM [Suspect]
     Indication: FIBROMYALGIA
     Dosage: 6 GM ( 6GM, 1 IN 1 D), ORAL
     Route: 048
     Dates: start: 20080805, end: 20080801
  2. AMLODIPINE BESYLATE [Concomitant]
  3. ESOMEPRAZOLE MAGNESIUM (ESOMPRAZOLE MAGNESIUM) [Concomitant]
  4. OLMESARTAN MEDOXOMIL [Concomitant]
  5. DULOXETINE HYDROCHLORIDE (DULOXETINE HYRODROCHLORIDE) [Concomitant]
  6. FEXOFENDINE HYDROCHLORIDE (FEXOFENDINE HYDROCHLORIDE) [Concomitant]
  7. CYCLOBENZAPRINE HYDROCHLORIDE (CYCLOBENZAPRINE HYRODROCHLORIDE) [Concomitant]
  8. EXENATIDE (EXENATIDE) INJECTION [Concomitant]
  9. LUBIPROSTONE (ALL OTHER THERAPEUTIC PRODUCTS) [Concomitant]
  10. DESOCAR (ALL OTHER TERAPEUTIC PRODUCTS) [Concomitant]

REACTIONS (7)
  - ANXIETY [None]
  - CHEST PAIN [None]
  - CONDITION AGGRAVATED [None]
  - DIARRHOEA [None]
  - ENTEROCOLITIS FUNGAL [None]
  - FEELING JITTERY [None]
  - PALPITATIONS [None]
